FAERS Safety Report 8841432 (Version 1)
Quarter: 2012Q4

REPORT INFORMATION
  Report Type: 
  Country: JP (occurrence: JP)
  Receive Date: 20121015
  Receipt Date: 20121015
  Transmission Date: 20130627
  Serious: Yes (Other)
  Sender: FDA-Public Use
  Company Number: JP-ASTRAZENECA-2012SE76591

PATIENT
  Age: 61 Year
  Sex: Male

DRUGS (2)
  1. MEPIVACAINE HYDROCHLORIDE [Suspect]
     Indication: EPIDURAL ANAESTHESIA
  2. MEPIVACAINE HYDROCHLORIDE [Suspect]
     Indication: EPIDURAL ANAESTHESIA

REACTIONS (3)
  - Arthritis bacterial [Unknown]
  - Muscle abscess [Unknown]
  - Intervertebral discitis [Unknown]
